FAERS Safety Report 11432721 (Version 5)
Quarter: 2015Q4

REPORT INFORMATION
  Report Type: Report from Study
  Country: US (occurrence: US)
  Receive Date: 20150828
  Receipt Date: 20151201
  Transmission Date: 20160304
  Serious: Yes (Hospitalization, Other)
  Sender: FDA-Public Use
  Company Number: US-SANOFI-AVENTIS-2013SA082140

PATIENT
  Age: 62 Year
  Sex: Female

DRUGS (5)
  1. ARAVA [Interacting]
     Active Substance: LEFLUNOMIDE
     Indication: RHEUMATOID ARTHRITIS
     Route: 065
     Dates: end: 201311
  2. AUBAGIO [Interacting]
     Active Substance: TERIFLUNOMIDE
     Indication: MULTIPLE SCLEROSIS
     Dosage: TAKEN FROM:ABOUT 2 WEEKS AGO
     Route: 048
     Dates: start: 20130723, end: 20140611
  3. COPAXONE [Concomitant]
     Active Substance: GLATIRAMER ACETATE
     Dates: start: 20140612, end: 201507
  4. AUBAGIO [Interacting]
     Active Substance: TERIFLUNOMIDE
     Indication: MULTIPLE SCLEROSIS
     Dosage: TAKEN FROM:ABOUT 2 WEEKS AGO
     Route: 048
     Dates: start: 20150926
  5. AUBAGIO [Suspect]
     Active Substance: TERIFLUNOMIDE
     Indication: MULTIPLE SCLEROSIS
     Dosage: TAKEN FROM:ABOUT 2 WEEKS AGO
     Route: 048
     Dates: start: 20130723, end: 20140611

REACTIONS (19)
  - Alopecia [Not Recovered/Not Resolved]
  - Ulcer [Not Recovered/Not Resolved]
  - Feeling abnormal [Recovered/Resolved]
  - Rheumatoid arthritis [Not Recovered/Not Resolved]
  - Malaise [Not Recovered/Not Resolved]
  - Nausea [Not Recovered/Not Resolved]
  - Insomnia [Unknown]
  - Poor quality sleep [Recovered/Resolved]
  - Asthenia [Recovered/Resolved]
  - Hepatic enzyme increased [Not Recovered/Not Resolved]
  - Fatigue [Not Recovered/Not Resolved]
  - Alanine aminotransferase increased [Unknown]
  - Weight decreased [Unknown]
  - Dyspepsia [Unknown]
  - Ear infection [Recovering/Resolving]
  - Diarrhoea [Unknown]
  - Drug interaction [Not Recovered/Not Resolved]
  - Vomiting [Unknown]
  - Decreased appetite [Unknown]

NARRATIVE: CASE EVENT DATE: 201310
